FAERS Safety Report 4479810-0 (Version None)
Quarter: 2004Q3

REPORT INFORMATION
  Report Type: 
  Country: None (occurrence: None)
  Receive Date: 20040923
  Receipt Date: 20040521
  Transmission Date: 20050211
  Serious: No
  Sender: FDA-Public Use
  Company Number: USA040568278

PATIENT
  Age: 82 Year
  Sex: Female
  Weight: 57 kg

DRUGS (8)
  1. FORTEO [Suspect]
     Indication: OSTEOPOROSIS
     Dosage: 20 UG/1 DAY
     Dates: start: 20040423
  2. VIACTIV [Concomitant]
  3. SINEMET [Concomitant]
  4. REQUIP [Concomitant]
  5. AMANTADINE HCL [Concomitant]
  6. LODOSYN [Concomitant]
  7. ENALAPRIL MALEATE [Concomitant]
  8. PREMARIN [Concomitant]

REACTIONS (3)
  - BLOOD PRESSURE INCREASED [None]
  - NASOPHARYNGITIS [None]
  - PLEURAL EFFUSION [None]
